FAERS Safety Report 6051031-X (Version None)
Quarter: 2009Q1

REPORT INFORMATION
  Report Type: 
  Country: None (occurrence: None)
  Receive Date: 20090126
  Receipt Date: 20080220
  Transmission Date: 20090719
  Serious: No
  Sender: FDA-Public Use
  Company Number: US-TYCO HEALTHCARE/MALLINCKRODT-T200800273

PATIENT

DRUGS (1)
  1. OPTIRAY 320 [Suspect]
     Indication: CATHETERISATION CARDIAC
     Dosage: 300 ML, SINGLE
     Dates: start: 20080201, end: 20080201

REACTIONS (1)
  - CATHETER THROMBOSIS [None]
